FAERS Safety Report 8523660-2 (Version None)
Quarter: 2012Q3

REPORT INFORMATION
  Report Type: 
  Country: None (occurrence: None)
  Receive Date: 20120720
  Receipt Date: 20120712
  Transmission Date: 20120928
  Serious: Yes (Hospitalization, Other)
  Sender: FDA-Public Use
  Company Number: UY-B.I. PHARMACEUTICALS,INC./RIDGEFIELD-2012-RA-00184RA

PATIENT
  Age: 78 Year
  Sex: Female
  Weight: 68 kg

DRUGS (5)
  1. ENALAPRIL MALEATE [Concomitant]
     Indication: HYPERTENSION
     Dosage: 20 NR
  2. METFORMIN HYDROCHLORIDE [Concomitant]
     Indication: TYPE 2 DIABETES MELLITUS
     Dosage: 2550 MG
     Route: 048
  3. GLYBURIDE [Concomitant]
     Indication: TYPE 2 DIABETES MELLITUS
     Dosage: 15 MG
     Route: 048
  4. NPH INSULIN [Concomitant]
     Indication: TYPE 2 DIABETES MELLITUS
  5. LINAGLIPTIN [Suspect]
     Indication: TYPE 2 DIABETES MELLITUS
     Dosage: 5 MG
     Route: 048
     Dates: start: 20120624, end: 20120712

REACTIONS (8)
  - METASTASES TO LIVER [None]
  - GENERAL PHYSICAL CONDITION ABNORMAL [None]
  - PANCREATIC CARCINOMA [None]
  - JAUNDICE [None]
  - BILIARY TRACT DISORDER [None]
  - NEPHROLITHIASIS [None]
  - RENAL CYST [None]
  - WEIGHT DECREASED [None]
